FAERS Safety Report 4608692-9 (Version None)
Quarter: 2005Q1

REPORT INFORMATION
  Report Type: 
  Country: None (occurrence: None)
  Receive Date: 20050315
  Receipt Date: 20050201
  Transmission Date: 20050727
  Serious: Yes (Other)
  Sender: FDA-Public Use
  Company Number: BE-ROCHE-394195

PATIENT
  Age: 15 Year
  Sex: Male
  Weight: 63 kg

DRUGS (2)
  1. ROACCUTANE [Suspect]
     Indication: ACNE
     Route: 048
     Dates: start: 20040901, end: 20050111
  2. ROACCUTANE [Suspect]
     Route: 048

REACTIONS (1)
  - APATHY [None]
